FAERS Safety Report 23751349 (Version 1)
Quarter: 2024Q2

REPORT INFORMATION
  Report Type: Spontaneous
  Country: US (occurrence: US)
  Receive Date: 20240417
  Receipt Date: 20240417
  Transmission Date: 20240716
  Serious: No
  Sender: FDA-Public Use
  Company Number: US-CIPLA LTD.-2023US04064

PATIENT

DRUGS (1)
  1. ESOMEPRAZOLE [Suspect]
     Active Substance: ESOMEPRAZOLE
     Indication: Vomiting
     Dosage: UNK
     Route: 065
     Dates: start: 202306

REACTIONS (3)
  - Product packaging quantity issue [Unknown]
  - Product use issue [Unknown]
  - Off label use [Unknown]

NARRATIVE: CASE EVENT DATE: 20230101
